FAERS Safety Report 10745621 (Version 3)
Quarter: 2015Q1

REPORT INFORMATION
  Report Type: Report from Study
  Country: DE (occurrence: DE)
  Receive Date: 20150128
  Receipt Date: 20150129
  Transmission Date: 20150721
  Serious: Yes (Hospitalization)
  Sender: FDA-Public Use
  Company Number: DE-ABBVIE-14P-062-1254063-00

PATIENT
  Age: 75 Year
  Sex: Female

DRUGS (5)
  1. DUODOPA [Suspect]
     Active Substance: CARBIDOPA\LEVODOPA
     Indication: PARKINSON^S DISEASE
     Route: 050
     Dates: start: 20140429, end: 20140508
  2. MADOPAR LT [Concomitant]
     Active Substance: BENSERAZIDE HYDROCHLORIDE\LEVODOPA
     Indication: PRODUCT USED FOR UNKNOWN INDICATION
     Dosage: HALF TABLET IN THE MORNING
     Route: 048
  3. MARCUMAR [Concomitant]
     Active Substance: PHENPROCOUMON
     Indication: ATRIAL FIBRILLATION
  4. DUODOPA [Suspect]
     Active Substance: CARBIDOPA\LEVODOPA
     Dosage: MD 8.0 ML; CRD 2.1 ML/H; ED 1.0 ML
     Route: 050
     Dates: start: 20140508
  5. MADOPAR [Concomitant]
     Active Substance: BENSERAZIDE HYDROCHLORIDE\LEVODOPA
     Indication: PRODUCT USED FOR UNKNOWN INDICATION
     Dosage: IN THE EVENING

REACTIONS (11)
  - Parkinson^s disease [Recovered/Resolved]
  - Atrial hypertrophy [Unknown]
  - Ventricular hypertrophy [Unknown]
  - Motor dysfunction [Unknown]
  - Blood chloride decreased [Unknown]
  - Mobility decreased [Unknown]
  - High density lipoprotein decreased [Unknown]
  - Movement disorder [Unknown]
  - Articular calcification [Unknown]
  - Mitral valve incompetence [Unknown]
  - Tricuspid valve incompetence [Unknown]

NARRATIVE: CASE EVENT DATE: 20140508
